FAERS Safety Report 9165116 (Version 1)
Quarter: 2013Q1

REPORT INFORMATION
  Report Type: Spontaneous
  Country: UA (occurrence: None)
  Receive Date: 20130228
  Receipt Date: 20130228
  Transmission Date: 20140127
  Serious: Yes (Life-Threatening)
  Sender: FDA-Public Use
  Company Number: GPV/UKR/13/0028013

PATIENT
  Age: 37 Year
  Sex: Female

DRUGS (4)
  1. LEVOLET [Suspect]
     Indication: PNEUMONIA
     Dosage: 500MG, 1 DOSE, ORAL
     Route: 048
     Dates: start: 20110621
  2. LAZOLVAN [Concomitant]
  3. ACC 200 [Concomitant]
  4. CEFTRIAXONE [Concomitant]

REACTIONS (2)
  - Dyspnoea [None]
  - Face oedema [None]
